FAERS Safety Report 24143201 (Version 1)
Quarter: 2024Q3

REPORT INFORMATION
  Report Type: Spontaneous
  Country: US (occurrence: US)
  Receive Date: 20240726
  Receipt Date: 20240726
  Transmission Date: 20241017
  Serious: No
  Sender: INCYTE
  Company Number: US-INCYTE CORPORATION-2024IN007450

PATIENT

DRUGS (3)
  1. OPZELURA [Suspect]
     Active Substance: RUXOLITINIB PHOSPHATE
     Indication: Vitiligo
     Dosage: UNK UNK, QD
     Route: 061
     Dates: start: 202404
  2. TACROLIMUS [Concomitant]
     Active Substance: TACROLIMUS
     Indication: Vitiligo
     Dosage: UNK, ALTERNATING 2 WEEKS ON AND OFF
     Route: 061
  3. FLUTICASONE [Concomitant]
     Active Substance: FLUTICASONE
     Indication: Vitiligo
     Dosage: UNK, ALTERNATING 2 WEEKS ON AND OFF
     Route: 061

REACTIONS (2)
  - Off label use [Unknown]
  - Product availability issue [Unknown]
